FAERS Safety Report 7831779-4 (Version None)
Quarter: 2011Q4

REPORT INFORMATION
  Report Type: 
  Country: None (occurrence: None)
  Receive Date: 20111021
  Receipt Date: 20111014
  Transmission Date: 20120403
  Serious: Yes (Hospitalization)
  Sender: FDA-Public Use
  Company Number: AU-TYCO HEALTHCARE/MALLINCKRODT-T201102068

PATIENT
  Age: 58 Year
  Sex: Female

DRUGS (3)
  1. MIRTAZAPINE [Suspect]
     Indication: MAJOR DEPRESSION
     Dosage: 45 MG, QD
  2. TEMAZEPAM [Suspect]
     Indication: MAJOR DEPRESSION
     Dosage: 10-20 MG/DAY
  3. TEMAZEPAM [Suspect]
     Indication: SLEEP DISORDER

REACTIONS (2)
  - TRANSIENT PSYCHOSIS [None]
  - WITHDRAWAL SYNDROME [None]
